FAERS Safety Report 18009022 (Version 1)
Quarter: 2020Q3

REPORT INFORMATION
  Report Type: Spontaneous
  Country: US (occurrence: US)
  Receive Date: 20200710
  Receipt Date: 20200710
  Transmission Date: 20201103
  Serious: Yes (Other)
  Sender: FDA-Public Use
  Company Number: US-SAOL THERAPEUTICS-2019SAO00382

PATIENT
  Age: 37 Year
  Sex: Male
  Weight: 51.25 kg

DRUGS (2)
  1. LIORESAL [Suspect]
     Active Substance: BACLOFEN
     Indication: MUSCLE SPASTICITY
     Dosage: 50 ?G, \DAY
     Route: 037
  2. LIORESAL [Suspect]
     Active Substance: BACLOFEN
     Indication: HEAD INJURY
     Dosage: 230 ?G, \DAY
     Route: 037

REACTIONS (5)
  - Device issue [Unknown]
  - Therapy non-responder [Not Recovered/Not Resolved]
  - Device dislocation [Not Recovered/Not Resolved]
  - Post lumbar puncture syndrome [Not Recovered/Not Resolved]
  - Cerebrospinal fluid leakage [Not Recovered/Not Resolved]

NARRATIVE: CASE EVENT DATE: 20190825
